FAERS Safety Report 23292149 (Version 1)
Quarter: 2023Q4

REPORT INFORMATION
  Report Type: Spontaneous
  Country: RO (occurrence: RO)
  Receive Date: 20231213
  Receipt Date: 20231213
  Transmission Date: 20240110
  Serious: Yes (Other)
  Sender: FDA-Public Use
  Company Number: RO-ROCHE-3461234

PATIENT
  Age: 67 Year

DRUGS (2)
  1. BEVACIZUMAB [Suspect]
     Active Substance: BEVACIZUMAB
     Indication: Hepatic cancer
     Dosage: 15 MILLIGRAM/KILOGRAM, Q21DAYS
     Route: 040
     Dates: start: 202206
  2. ATEZOLIZUMAB [Suspect]
     Active Substance: ATEZOLIZUMAB
     Indication: Hepatic cancer
     Dosage: 1200 MILLIGRAM
     Route: 040
     Dates: start: 202206

REACTIONS (3)
  - Mesenteric vein thrombosis [Unknown]
  - Hepatic cirrhosis [Unknown]
  - Off label use [Unknown]

NARRATIVE: CASE EVENT DATE: 20220801
